FAERS Safety Report 7095986-3 (Version None)
Quarter: 2010Q4

REPORT INFORMATION
  Report Type: 
  Country: None (occurrence: None)
  Receive Date: 20101111
  Receipt Date: 20101103
  Transmission Date: 20110411
  Serious: No
  Sender: FDA-Public Use
  Company Number: US-B.I. PHARMACEUTICALS,INC./RIDGEFIELD-2010-BP-12368BP

PATIENT
  Sex: Female

DRUGS (3)
  1. ZANTAC 150 [Suspect]
     Indication: DYSPEPSIA
     Dosage: 150 MG
     Route: 048
     Dates: start: 20101103, end: 20101103
  2. CROMAX [Concomitant]
     Indication: SUPPLEMENTATION THERAPY
  3. RED YEAST RISE [Concomitant]
     Indication: SUPPLEMENTATION THERAPY

REACTIONS (3)
  - PAIN OF SKIN [None]
  - PRURITUS [None]
  - URTICARIA [None]
